FAERS Safety Report 20107602 (Version 1)
Quarter: 2021Q4

REPORT INFORMATION
  Report Type: Spontaneous
  Country: CN (occurrence: CN)
  Receive Date: 20211124
  Receipt Date: 20211124
  Transmission Date: 20220303
  Serious: Yes (Other)
  Sender: FDA-Public Use
  Company Number: CN-ELI_LILLY_AND_COMPANY-CN202111008162

PATIENT
  Age: 86 Year
  Sex: Male
  Weight: 53 kg

DRUGS (9)
  1. GEMZAR [Suspect]
     Active Substance: GEMCITABINE HYDROCHLORIDE
     Indication: Colon cancer
     Dosage: 300 MG, SINGLE
     Route: 041
     Dates: start: 20210925, end: 20210926
  2. OXALIPLATIN [Suspect]
     Active Substance: OXALIPLATIN
     Indication: Colon cancer
     Dosage: 100 MG, SINGLE
     Route: 041
     Dates: start: 20210925, end: 20210925
  3. FLUOROURACIL [Suspect]
     Active Substance: FLUOROURACIL
     Indication: Colon cancer
     Dosage: 1.8 G, SINGLE
     Route: 041
     Dates: start: 20210925, end: 20210925
  4. SODIUM CHLORIDE [Concomitant]
     Active Substance: SODIUM CHLORIDE
     Indication: Medication dilution
     Dosage: 230 ML, SINGLE
     Route: 041
     Dates: start: 20210925, end: 20210925
  5. SODIUM CHLORIDE [Concomitant]
     Active Substance: SODIUM CHLORIDE
     Dosage: 150 ML, SINGLE
     Route: 041
     Dates: start: 20210926, end: 20210926
  6. DEXTROSE [Concomitant]
     Active Substance: DEXTROSE
     Indication: Medication dilution
     Dosage: 150 ML, SINGLE
     Route: 041
     Dates: start: 20210922, end: 20210928
  7. DEXTROSE [Concomitant]
     Active Substance: DEXTROSE
     Indication: Supplementation therapy
     Dosage: 500 ML, SINGLE
     Route: 041
     Dates: start: 20210925, end: 20210925
  8. DEXTROSE [Concomitant]
     Active Substance: DEXTROSE
     Dosage: 40 ML, UNKNOWN
     Route: 065
     Dates: start: 20211009
  9. GLYCYRRHIZIN [Concomitant]
     Active Substance: GLYCYRRHIZIN
     Indication: Liver disorder
     Dosage: 60 ML
     Dates: start: 20210922, end: 20210928

REACTIONS (4)
  - Gamma-glutamyltransferase increased [Unknown]
  - Aspartate aminotransferase increased [Unknown]
  - Alanine aminotransferase increased [Unknown]
  - Off label use [Unknown]

NARRATIVE: CASE EVENT DATE: 20210925
